FAERS Safety Report 5593425-2 (Version None)
Quarter: 2008Q1

REPORT INFORMATION
  Report Type: 
  Country: None (occurrence: None)
  Receive Date: 20080116
  Receipt Date: 20080110
  Transmission Date: 20080703
  Serious: Yes (Death, Hospitalization)
  Sender: FDA-Public Use
  Company Number: ES-BRISTOL-MYERS SQUIBB COMPANY-14031306

PATIENT
  Age: 58 Year
  Sex: Female

DRUGS (8)
  1. METFORMIN HCL [Suspect]
     Indication: DIABETES MELLITUS
     Route: 048
  2. ENALAPRIL MALEATE [Suspect]
  3. ALLOPURINOL [Suspect]
  4. ENOXAPARIN SODIUM [Suspect]
  5. POTASSIUM CLORAZEPATE [Suspect]
  6. MIRTAZAPINE [Suspect]
  7. DIGOXIN [Suspect]
  8. TORASEMIDE [Suspect]

REACTIONS (4)
  - CARDIAC ARREST [None]
  - DEATH [None]
  - METABOLIC ACIDOSIS [None]
  - PNEUMONIA ASPIRATION [None]
